FAERS Safety Report 8840857 (Version 3)
Quarter: 2012Q4

REPORT INFORMATION
  Report Type: Report from Study
  Country: CA (occurrence: CA)
  Receive Date: 20121015
  Receipt Date: 20121226
  Transmission Date: 20130627
  Serious: Yes (Hospitalization, Other)
  Sender: FDA-Public Use
  Company Number: CA-ROCHE-1141849

PATIENT
  Age: 51 Year
  Sex: Female
  Weight: 61.74 kg

DRUGS (12)
  1. TOCILIZUMAB [Suspect]
     Indication: RHEUMATOID ARTHRITIS
     Dosage: Date of last dose prior to AE:26/Oct/2012.
     Route: 042
     Dates: start: 20110606
  2. TOCILIZUMAB [Suspect]
     Route: 042
     Dates: start: 20121217
  3. METHOTREXATE [Concomitant]
     Route: 048
  4. ZOCOR [Concomitant]
     Route: 065
  5. ELTROXIN [Concomitant]
     Route: 065
  6. ACTONEL [Concomitant]
  7. PANTOPRAZOLE [Concomitant]
     Route: 065
  8. CELEBREX [Concomitant]
     Route: 065
  9. FOLIC ACID [Concomitant]
     Route: 065
  10. TRAMADOL [Concomitant]
     Route: 065
  11. FERROUS GLUCONATE [Concomitant]
  12. TYLENOL [Concomitant]
     Route: 065

REACTIONS (2)
  - Hip surgery [Recovered/Resolved]
  - Respiratory tract infection [Recovered/Resolved]
